FAERS Safety Report 8620478-7 (Version None)
Quarter: 2012Q3

REPORT INFORMATION
  Report Type: 
  Country: None (occurrence: None)
  Receive Date: 20120824
  Receipt Date: 20120820
  Transmission Date: 20120928
  Serious: No
  Sender: FDA-Public Use
  Company Number: US-B.I. PHARMACEUTICALS,INC./RIDGEFIELD-2012-BP-20396BP

PATIENT
  Age: 65 Year
  Sex: Male

DRUGS (9)
  1. INSULIN [Concomitant]
     Indication: DIABETES MELLITUS
     Route: 058
  2. VICTOZA [Concomitant]
     Indication: DIABETES MELLITUS
     Route: 058
  3. MULTAQ [Concomitant]
     Indication: ATRIAL FIBRILLATION
     Dates: start: 20120601
  4. METFORMIN HCL [Concomitant]
     Indication: DIABETES MELLITUS
  5. HYZAAR [Concomitant]
     Indication: HYPERTENSION
  6. PRADAXA [Suspect]
     Indication: ATRIAL FIBRILLATION
     Dosage: 300 MG
     Route: 048
     Dates: start: 20120201, end: 20120820
  7. BYSTOLIC [Concomitant]
     Indication: HYPERTENSION
  8. LASIX [Concomitant]
     Indication: HYPERTENSION
  9. LOTREL [Concomitant]
     Indication: HYPERTENSION

REACTIONS (7)
  - GOUT [None]
  - NAUSEA [None]
  - ARTHRITIS [None]
  - ARTHRALGIA [None]
  - VOMITING [None]
  - DIARRHOEA [None]
  - JOINT SWELLING [None]
